FAERS Safety Report 14861248 (Version 1)
Quarter: 2018Q2

REPORT INFORMATION
  Report Type: Spontaneous
  Country: US (occurrence: US)
  Receive Date: 20180508
  Receipt Date: 20180508
  Transmission Date: 20180711
  Serious: Yes (Other)
  Sender: FDA-Public Use
  Company Number: US-BAYER-2018-084166

PATIENT
  Age: 63 Year
  Sex: Female

DRUGS (1)
  1. NEXAVAR [Suspect]
     Active Substance: SORAFENIB
     Indication: METASTATIC MALIGNANT MELANOMA
     Dosage: 200 MG, BID
     Route: 048
     Dates: start: 2015

REACTIONS (4)
  - Off label use [None]
  - Sensory loss [Not Recovered/Not Resolved]
  - Akinesia [Not Recovered/Not Resolved]
  - Product use in unapproved indication [None]

NARRATIVE: CASE EVENT DATE: 201803
